FAERS Safety Report 16240122 (Version 1)
Quarter: 2019Q2

REPORT INFORMATION
  Report Type: Report from Study
  Country: IT (occurrence: IT)
  Receive Date: 20190425
  Receipt Date: 20190425
  Transmission Date: 20190711
  Serious: Yes (Death, Other)
  Sender: FDA-Public Use
  Company Number: IT-TEVA-2019-IT-1041172

PATIENT

DRUGS (2)
  1. ADCETRIS [Suspect]
     Active Substance: BRENTUXIMAB VEDOTIN
     Indication: HODGKIN^S DISEASE
     Dosage: 1.8 MG/KG, EVERY 3 WEEKS (30-MIN INFUSION IN 3-WEEK CYCLES FOR 4 CYCLES)
     Route: 042
  2. BENDAMUSTINE HYDROCHLORIDE. [Suspect]
     Active Substance: BENDAMUSTINE HYDROCHLORIDE
     Indication: HODGKIN^S DISEASE
     Dosage: 120 MG/M2, CYCLIC (ON DAYS 1-2 EVERY 28 DAYS AS SINGLE AGENT)
     Route: 042

REACTIONS (3)
  - Product use in unapproved indication [Unknown]
  - Death [Fatal]
  - Bladder neoplasm [Unknown]
